FAERS Safety Report 15359505 (Version 2)
Quarter: 2018Q3

REPORT INFORMATION
  Report Type: Spontaneous
  Country: PT (occurrence: PT)
  Receive Date: 20180907
  Receipt Date: 20180919
  Transmission Date: 20181010
  Serious: Yes (Hospitalization, Other)
  Sender: FDA-Public Use
  Company Number: PT-AUROBINDO-AUR-APL-2018-044285

PATIENT
  Age: 13 Month
  Sex: Female

DRUGS (4)
  1. IBUPROFEN. [Suspect]
     Active Substance: IBUPROFEN
     Indication: PYREXIA
  2. PARACETAMOL [Suspect]
     Active Substance: ACETAMINOPHEN
     Indication: HAND-FOOT-AND-MOUTH DISEASE
     Dosage: UNK
     Route: 065
  3. IBUPROFEN. [Suspect]
     Active Substance: IBUPROFEN
     Indication: HAND-FOOT-AND-MOUTH DISEASE
     Dosage: UNK
     Route: 065
  4. PARACETAMOL [Suspect]
     Active Substance: ACETAMINOPHEN
     Indication: PYREXIA

REACTIONS (20)
  - Neck pain [Recovering/Resolving]
  - Thrombocytosis [Recovering/Resolving]
  - Food refusal [Recovering/Resolving]
  - Acute haemorrhagic oedema of infancy [Unknown]
  - Lymphadenopathy [Recovering/Resolving]
  - Pain [Recovering/Resolving]
  - Irritability [Recovering/Resolving]
  - Diarrhoea haemorrhagic [Recovering/Resolving]
  - Strawberry tongue [Recovering/Resolving]
  - Skin lesion [Recovering/Resolving]
  - Pyrexia [Recovering/Resolving]
  - Condition aggravated [Recovering/Resolving]
  - Kawasaki^s disease [Recovering/Resolving]
  - Rash [Recovering/Resolving]
  - Oedema [Recovering/Resolving]
  - Hypoalbuminaemia [Recovering/Resolving]
  - Vasculitis [Recovering/Resolving]
  - Normochromic anaemia [Recovering/Resolving]
  - Haematuria [Recovering/Resolving]
  - Inflammation [Recovering/Resolving]
